FAERS Safety Report 21772507 (Version 1)
Quarter: 2022Q4

REPORT INFORMATION
  Report Type: Spontaneous
  Country: IT (occurrence: IT)
  Receive Date: 20221223
  Receipt Date: 20221223
  Transmission Date: 20230113
  Serious: Yes (Death, Hospitalization, Other)
  Sender: FDA-Public Use
  Company Number: IT-009507513-2212ITA006242

PATIENT
  Age: 88 Year
  Sex: Male

DRUGS (1)
  1. LAGEVRIO [Suspect]
     Active Substance: MOLNUPIRAVIR
     Indication: COVID-19
     Dosage: UNK
     Route: 048
     Dates: start: 2022

REACTIONS (3)
  - Death [Fatal]
  - Adverse event [Unknown]
  - Nausea [Unknown]

NARRATIVE: CASE EVENT DATE: 20220101
